FAERS Safety Report 9686006 (Version 1)
Quarter: 2013Q4

REPORT INFORMATION
  Report Type: Spontaneous
  Country: US (occurrence: US)
  Receive Date: 20131113
  Receipt Date: 20131113
  Transmission Date: 20140711
  Serious: No
  Sender: FDA-Public Use
  Company Number: US-ALLERGAN-1301813US

PATIENT
  Sex: Female

DRUGS (4)
  1. COMBIGAN[R] [Suspect]
     Indication: GLAUCOMA
     Dosage: 2 GTT, QHS
     Route: 047
     Dates: start: 20130205, end: 20130206
  2. QUINIPRIL [Concomitant]
     Indication: HYPERTENSION
     Dosage: UNK
     Route: 048
  3. LUMIGAN 0.03% [Concomitant]
     Indication: GLAUCOMA
     Dosage: 2 GTT, QHS
     Route: 047
  4. CRESTOR                            /01588601/ [Concomitant]
     Indication: BLOOD CHOLESTEROL INCREASED
     Dosage: UNK
     Route: 048

REACTIONS (3)
  - Muscular weakness [Unknown]
  - Mobility decreased [Unknown]
  - Hypotension [Unknown]
